FAERS Safety Report 15966713 (Version 1)
Quarter: 2019Q1

REPORT INFORMATION
  Report Type: Spontaneous
  Country: GB (occurrence: GB)
  Receive Date: 20190215
  Receipt Date: 20190215
  Transmission Date: 20190418
  Serious: Yes (Death, Other)
  Sender: FDA-Public Use
  Company Number: GB-B.I. PHARMACEUTICALS,INC./RIDGEFIELD-2019-12-000546

PATIENT
  Age: 57 Year
  Sex: Male
  Weight: 63 kg

DRUGS (1)
  1. OFEV [Suspect]
     Active Substance: NINTEDANIB
     Indication: IDIOPATHIC PULMONARY FIBROSIS
     Route: 048
     Dates: start: 20190111, end: 20190125

REACTIONS (22)
  - Diarrhoea [Unknown]
  - Acidosis [Unknown]
  - Muscle rigidity [Unknown]
  - Skin discolouration [Unknown]
  - Hypopnoea [Unknown]
  - Thirst [Unknown]
  - Incontinence [Unknown]
  - Gallbladder oedema [Unknown]
  - Drug-induced liver injury [Fatal]
  - Malaise [Unknown]
  - Liver tenderness [Unknown]
  - Abdominal pain [Unknown]
  - Abdominal distension [Unknown]
  - Syncope [Unknown]
  - Eye movement disorder [Unknown]
  - Vomiting [Unknown]
  - Pulseless electrical activity [Not Recovered/Not Resolved]
  - Jaundice [Unknown]
  - Agonal rhythm [Not Recovered/Not Resolved]
  - Confusional state [Unknown]
  - Cough [Unknown]
  - Catarrh [Unknown]

NARRATIVE: CASE EVENT DATE: 201901
